FAERS Safety Report 11024615 (Version 1)
Quarter: 2015Q2

REPORT INFORMATION
  Report Type: Spontaneous
  Country: US (occurrence: None)
  Receive Date: 20150413
  Receipt Date: 20150413
  Transmission Date: 20150821
  Serious: No
  Sender: FDA-Public Use
  Company Number: None

PATIENT

DRUGS (1)
  1. HYPERHEP B S/D [Suspect]
     Active Substance: HUMAN HEPATITIS B VIRUS IMMUNE GLOBULIN
     Dosage: SINGLE DOSE SYRINGE

REACTIONS (4)
  - Syringe issue [None]
  - Product packaging issue [None]
  - Product packaging confusion [None]
  - Drug dispensing error [None]

NARRATIVE: CASE EVENT DATE: 20150106
